FAERS Safety Report 20389964 (Version 1)
Quarter: 2022Q1

REPORT INFORMATION
  Report Type: Spontaneous
  Country: MX (occurrence: MX)
  Receive Date: 20220128
  Receipt Date: 20220128
  Transmission Date: 20220424
  Serious: Yes (Hospitalization, Disabling, Other)
  Sender: FDA-Public Use
  Company Number: MX-NOVOPROD-871590

PATIENT
  Age: 77 Year
  Sex: Female
  Weight: 54 kg

DRUGS (3)
  1. LEVEMIR [Suspect]
     Active Substance: INSULIN DETEMIR
     Indication: Type 2 diabetes mellitus
     Dosage: 10IU
     Route: 065
     Dates: start: 2010, end: 202110
  2. GLYBURIDE [Concomitant]
     Active Substance: GLYBURIDE
     Indication: Type 2 diabetes mellitus
     Dosage: 50 MG, QD( 1 TABLET )
     Route: 048
  3. METFORMIN [Concomitant]
     Active Substance: METFORMIN HYDROCHLORIDE
     Indication: Type 2 diabetes mellitus
     Dosage: 850 MG, QD(2 TABLETS IN MORNING)
     Route: 048

REACTIONS (4)
  - Hip fracture [Recovered/Resolved]
  - Visual impairment [Recovering/Resolving]
  - Condition aggravated [Unknown]
  - Device issue [Unknown]

NARRATIVE: CASE EVENT DATE: 20160101
